FAERS Safety Report 4377365-2 (Version None)
Quarter: 2004Q2

REPORT INFORMATION
  Report Type: 
  Country: None (occurrence: None)
  Receive Date: 20040615
  Receipt Date: 20040603
  Transmission Date: 20050107
  Serious: Yes (Death)
  Sender: FDA-Public Use
  Company Number: 200415656GDDC

PATIENT
  Age: 74 Year
  Sex: Female

DRUGS (1)
  1. CLEXANE [Suspect]
     Indication: POSTOPERATIVE THROMBOSIS
     Route: 058
     Dates: start: 20040515, end: 20040524

REACTIONS (4)
  - ABDOMINAL PAIN [None]
  - DEATH [None]
  - HAEMOGLOBIN DECREASED [None]
  - RETROPERITONEAL HAEMORRHAGE [None]
